FAERS Safety Report 10030700 (Version 1)
Quarter: 2014Q1

REPORT INFORMATION
  Report Type: Spontaneous
  Country: US (occurrence: US)
  Receive Date: 20140323
  Receipt Date: 20140323
  Transmission Date: 20141002
  Serious: No
  Sender: FDA-Public Use
  Company Number: US-ALLERGAN-1400825US

PATIENT
  Sex: Female

DRUGS (1)
  1. LATISSE 0.03% [Suspect]
     Indication: GROWTH OF EYELASHES
     Dosage: AS DIRECTED, ONE DROP TO EACH UPPER EYELID
     Route: 061
     Dates: start: 201312

REACTIONS (1)
  - Drug ineffective [Unknown]
